FAERS Safety Report 16190117 (Version 14)
Quarter: 2024Q1

REPORT INFORMATION
  Report Type: Report from Study
  Country: CA (occurrence: CA)
  Receive Date: 20190412
  Receipt Date: 20240331
  Transmission Date: 20240410
  Serious: Yes (Hospitalization, Other)
  Sender: FDA-Public Use
  Company Number: PHHY2011CA50280

PATIENT
  Age: 52 Year
  Sex: Male

DRUGS (16)
  1. SANDOSTATIN [Suspect]
     Active Substance: OCTREOTIDE ACETATE
     Indication: Neuroendocrine tumour
     Dosage: (UNKNOWN DOSE FOR 5 DAYS)
     Route: 058
     Dates: start: 20100427, end: 20100502
  2. SANDOSTATIN [Suspect]
     Active Substance: OCTREOTIDE ACETATE
  3. SANDOSTATIN [Suspect]
     Active Substance: OCTREOTIDE ACETATE
  4. SANDOSTATIN LAR DEPOT [Suspect]
     Active Substance: OCTREOTIDE ACETATE
     Indication: Neuroendocrine tumour
     Dosage: 20 MG, EVERY 4 WEEKS (EVERY 28 DAYS)
     Route: 030
     Dates: start: 20100502
  5. SANDOSTATIN LAR DEPOT [Suspect]
     Active Substance: OCTREOTIDE ACETATE
     Dosage: 30 MG, EVERY 4 WEEKS (EVERY 28 DAYS)
     Route: 030
     Dates: start: 20100502
  6. SANDOSTATIN LAR DEPOT [Suspect]
     Active Substance: OCTREOTIDE ACETATE
     Dosage: 20 MG, (EVERY 4 WEEKS)
     Route: 030
     Dates: start: 20100502
  7. SANDOSTATIN LAR DEPOT [Suspect]
     Active Substance: OCTREOTIDE ACETATE
     Dosage: 20 MG, QMO
     Route: 030
     Dates: start: 20120907
  8. SANDOSTATIN LAR DEPOT [Suspect]
     Active Substance: OCTREOTIDE ACETATE
     Dosage: 20 MG, QMO
     Route: 030
     Dates: start: 20131001
  9. SANDOSTATIN LAR DEPOT [Suspect]
     Active Substance: OCTREOTIDE ACETATE
     Dosage: 20 MG, QMO (EVERY 4 WEEKS)
     Route: 030
     Dates: start: 20160107
  10. SANDOSTATIN LAR DEPOT [Suspect]
     Active Substance: OCTREOTIDE ACETATE
     Dosage: 30 MG, Q4W (EVERY 28 DAYS)
     Route: 030
     Dates: start: 20210902
  11. AFINITOR [Concomitant]
     Active Substance: EVEROLIMUS
     Indication: Product used for unknown indication
     Dosage: 10 MG, QD
     Route: 065
  12. PROGLYCEM [Concomitant]
     Active Substance: DIAZOXIDE
     Indication: Product used for unknown indication
     Dosage: 200 MG, QHS
     Route: 065
  13. LOVENOX [Concomitant]
     Active Substance: ENOXAPARIN SODIUM
     Indication: Product used for unknown indication
     Dosage: UNK UNK, QD
     Route: 065
  14. AMLODIPINE [Concomitant]
     Active Substance: AMLODIPINE BESYLATE
     Indication: Product used for unknown indication
     Dosage: (STRENGTH: 2.5)
     Route: 048
  15. PANTOPRAZOLE [Concomitant]
     Active Substance: PANTOPRAZOLE
     Indication: Product used for unknown indication
     Dosage: (STRENGTH: 40)
     Route: 048
  16. ROSUVASTATIN [Concomitant]
     Active Substance: ROSUVASTATIN
     Indication: Product used for unknown indication
     Dosage: UNK
     Route: 065

REACTIONS (34)
  - Faeces discoloured [Unknown]
  - Haemoglobin abnormal [Recovering/Resolving]
  - Haematemesis [Unknown]
  - Superficial vein thrombosis [Unknown]
  - Pulmonary embolism [Unknown]
  - Abdominal pain lower [Unknown]
  - Procedural haemorrhage [Recovered/Resolved]
  - Stress [Unknown]
  - Influenza [Unknown]
  - Blood pressure increased [Unknown]
  - Blood pressure diastolic increased [Unknown]
  - Blood pressure decreased [Unknown]
  - Sinusitis [Unknown]
  - Paranasal sinus discomfort [Unknown]
  - Oropharyngeal pain [Unknown]
  - Weight decreased [Unknown]
  - Rhinorrhoea [Unknown]
  - Musculoskeletal chest pain [Unknown]
  - Pyrexia [Unknown]
  - Chills [Unknown]
  - Body temperature increased [Unknown]
  - Scan abnormal [Unknown]
  - Platelet count decreased [Unknown]
  - Fatigue [Unknown]
  - Visual impairment [Recovered/Resolved]
  - Feeling abnormal [Recovered/Resolved]
  - Hypoglycaemia [Recovered/Resolved]
  - Dizziness [Unknown]
  - Headache [Unknown]
  - Abdominal distension [Unknown]
  - Injection site haemorrhage [Unknown]
  - Injection site pain [Recovered/Resolved]
  - Injection site hypoaesthesia [Unknown]
  - Injection site discomfort [Unknown]

NARRATIVE: CASE EVENT DATE: 20150101
